FAERS Safety Report 23180145 (Version 1)
Quarter: 2023Q4

REPORT INFORMATION
  Report Type: Spontaneous
  Country: US (occurrence: US)
  Receive Date: 20231114
  Receipt Date: 20231114
  Transmission Date: 20240109
  Serious: No
  Sender: FDA-Public Use
  Company Number: US-drreddys-SPO/USA/23/0179879

PATIENT
  Age: 21 Year

DRUGS (3)
  1. ACCUTANE [Suspect]
     Active Substance: ISOTRETINOIN
     Indication: Product used for unknown indication
     Dosage: RMA ISSUE DATE: 14 JUNE 2023 11:56:32 AM, 06 JULY 2023 03:08:45 PM, 26 JULY 2023 02:19:33 PM, 25 AUG
  2. ACCUTANE [Suspect]
     Active Substance: ISOTRETINOIN
     Dosage: RMA ISSUE DATE: 10 JANUARY 2023 11:02:39 AM
  3. ACCUTANE [Suspect]
     Active Substance: ISOTRETINOIN
     Dosage: RMA ISSUE DATE: 14 JUNE 2023 11:56:32 AM, 06 JULY 2023 03:08:45 PM, 26 JULY 2023 02:19:33 PM, 25 AUG

REACTIONS (1)
  - Therapy cessation [Unknown]
